FAERS Safety Report 6331671-0 (Version None)
Quarter: 2009Q3

REPORT INFORMATION
  Report Type: 
  Country: None (occurrence: None)
  Receive Date: 20090827
  Receipt Date: 20090821
  Transmission Date: 20100115
  Serious: Yes (Death, Hospitalization)
  Sender: FDA-Public Use
  Company Number: ES-WYE-G04263509

PATIENT
  Age: 81 Year
  Sex: Female

DRUGS (6)
  1. DOBUPAL RETARD [Suspect]
     Dosage: DOBUPAL RETARD 75 MG DAILY, DOSE NOT REPORTED
     Route: 048
     Dates: end: 20080923
  2. METFORMIN HCL [Concomitant]
     Indication: TYPE 2 DIABETES MELLITUS
     Dosage: DAILY, DOSE NOT REPORTED
     Route: 048
     Dates: end: 20080923
  3. AMARYL [Concomitant]
     Indication: TYPE 2 DIABETES MELLITUS
     Dosage: AMARYL 4 MG, DAILY, DOSE NOT REPORTED
     Route: 048
     Dates: end: 20080923
  4. COAPROVEL [Concomitant]
     Indication: HYPERTENSION
     Dosage: 300 MG/12.5 MG PER DAY
     Route: 048
     Dates: end: 20080923
  5. ADIRO [Interacting]
     Dosage: ADIRO 100 MG DAILY, DOSE NOT REPORTED
     Route: 048
     Dates: end: 20080923
  6. EMCONCOR [Concomitant]
     Indication: HYPERTENSION
     Dosage: DAILY, DOSE NOT REPORTED
     Route: 048
     Dates: end: 20080923

REACTIONS (3)
  - HAEMATEMESIS [None]
  - MELAENA [None]
  - UPPER GASTROINTESTINAL HAEMORRHAGE [None]
